FAERS Safety Report 11724149 (Version 1)
Quarter: 2015Q4

REPORT INFORMATION
  Report Type: Spontaneous
  Country: FR (occurrence: FR)
  Receive Date: 20151111
  Receipt Date: 20151111
  Transmission Date: 20160304
  Serious: Yes (Hospitalization, Other)
  Sender: FDA-Public Use
  Company Number: FR-ELI_LILLY_AND_COMPANY-FR201509002470

PATIENT
  Sex: Male
  Weight: 78 kg

DRUGS (7)
  1. EXOMUC [Concomitant]
     Active Substance: ACETYLCYSTEINE
     Indication: CHRONIC OBSTRUCTIVE PULMONARY DISEASE
     Dosage: 1 DF, BID
     Route: 048
     Dates: start: 201505
  2. FUMAFER [Suspect]
     Active Substance: FERROUS FUMARATE
     Indication: IRON DEFICIENCY ANAEMIA
     Dosage: 1 DF, QD
     Route: 048
     Dates: start: 201508, end: 20150822
  3. LANSOPRAZOLE. [Concomitant]
     Active Substance: LANSOPRAZOLE
     Indication: GASTRIC ULCER
     Dosage: 15 MG, UNKNOWN
     Route: 048
     Dates: start: 201503
  4. SYMBICORT [Concomitant]
     Active Substance: BUDESONIDE\FORMOTEROL FUMARATE DIHYDRATE
     Indication: CHRONIC OBSTRUCTIVE PULMONARY DISEASE
     Dosage: 400UG/12UG, BID
     Route: 055
     Dates: start: 201505
  5. SPECIAFOLDINE [Concomitant]
     Active Substance: FOLIC ACID
     Indication: PREMEDICATION
     Dosage: 0.4 MG, UNKNOWN
     Route: 048
     Dates: start: 20150807
  6. ALIMTA [Suspect]
     Active Substance: PEMETREXED DISODIUM
     Indication: NON-SMALL CELL LUNG CANCER
     Dosage: UNK, UNKNOWN
     Route: 042
     Dates: start: 20150814, end: 20150814
  7. ALIMTA [Suspect]
     Active Substance: PEMETREXED DISODIUM
     Indication: NON-SMALL CELL LUNG CANCER

REACTIONS (8)
  - Neutropenia [Unknown]
  - Rash [Recovered/Resolved with Sequelae]
  - Alanine aminotransferase increased [Unknown]
  - Pyrexia [Unknown]
  - Burning sensation [Unknown]
  - Anaemia [Unknown]
  - Thrombocytopenia [Unknown]
  - Hypotension [Unknown]

NARRATIVE: CASE EVENT DATE: 201508
